FAERS Safety Report 22684884 (Version 5)
Quarter: 2024Q2

REPORT INFORMATION
  Report Type: Report from Study
  Country: US (occurrence: US)
  Receive Date: 20230710
  Receipt Date: 20240620
  Transmission Date: 20240716
  Serious: Yes (Other)
  Sender: FDA-Public Use
  Company Number: US-002147023-NVSC2023US152286

PATIENT
  Age: 35 Year
  Sex: Female

DRUGS (1)
  1. KESIMPTA [Suspect]
     Active Substance: OFATUMUMAB
     Indication: Relapsing multiple sclerosis
     Dosage: 20 MG, QMO
     Route: 058
     Dates: start: 20230705

REACTIONS (12)
  - Cholecystitis infective [Unknown]
  - Influenza like illness [Unknown]
  - Pain [Unknown]
  - Chills [Unknown]
  - Headache [Unknown]
  - Weight decreased [Unknown]
  - Scar [Unknown]
  - Urinary tract infection [Unknown]
  - Fatigue [Unknown]
  - Anaemia [Unknown]
  - Localised infection [Unknown]
  - Product distribution issue [Unknown]

NARRATIVE: CASE EVENT DATE: 20230706
